FAERS Safety Report 6732389-2 (Version None)
Quarter: 2010Q2

REPORT INFORMATION
  Report Type: 
  Country: None (occurrence: None)
  Receive Date: 20100519
  Receipt Date: 20100511
  Transmission Date: 20101027
  Serious: Yes (Death, Hospitalization)
  Sender: FDA-Public Use
  Company Number: BR-ROCHE-702459

PATIENT
  Age: 76 Year
  Sex: Female

DRUGS (7)
  1. TOCILIZUMAB [Suspect]
     Indication: RHEUMATOID ARTHRITIS
     Dosage: ROUTE: ENDOVENOUS; FORM INFUSION
     Route: 050
     Dates: start: 20090801, end: 20090801
  2. TOCILIZUMAB [Suspect]
     Route: 050
     Dates: start: 20090902, end: 20090902
  3. TOCILIZUMAB [Suspect]
     Route: 050
     Dates: start: 20090903, end: 20090903
  4. TOCILIZUMAB [Suspect]
     Route: 050
     Dates: start: 20091004, end: 20091004
  5. TOCILIZUMAB [Suspect]
     Route: 050
     Dates: start: 20091103, end: 20091103
  6. TOCILIZUMAB [Suspect]
     Route: 050
     Dates: start: 20091203, end: 20091203
  7. TOCILIZUMAB [Suspect]
     Route: 050
     Dates: start: 20100104, end: 20100104

REACTIONS (4)
  - CARDIAC DISORDER [None]
  - FALL [None]
  - INFARCTION [None]
  - MALAISE [None]
